FAERS Safety Report 17325436 (Version 2)
Quarter: 2020Q1

REPORT INFORMATION
  Report Type: Report from Study
  Country: US (occurrence: US)
  Receive Date: 20200127
  Receipt Date: 20200212
  Transmission Date: 20200409
  Serious: Yes (Hospitalization, Other)
  Sender: FDA-Public Use
  Company Number: US-ROCHE-2528593

PATIENT
  Age: 88 Year
  Sex: Male
  Weight: 79.7 kg

DRUGS (1)
  1. ATEZOLIZUMAB. [Suspect]
     Active Substance: ATEZOLIZUMAB
     Indication: BLADDER TRANSITIONAL CELL CARCINOMA
     Dosage: LAST DOSE ADMINISTERED: 06/DEC/2019
     Route: 042
     Dates: start: 20190501, end: 20190612

REACTIONS (8)
  - Acute kidney injury [Recovered/Resolved]
  - Peroneal nerve palsy [Unknown]
  - Oedema peripheral [Unknown]
  - Blood creatinine increased [Recovered/Resolved]
  - Hyponatraemia [Recovered/Resolved]
  - Mental status changes [Recovered/Resolved]
  - Brain oedema [Recovered/Resolved]
  - Encephalopathy [Recovered/Resolved]

NARRATIVE: CASE EVENT DATE: 20190612
